FAERS Safety Report 6664603-6 (Version None)
Quarter: 2010Q1

REPORT INFORMATION
  Report Type: 
  Country: None (occurrence: None)
  Receive Date: 20100330
  Receipt Date: 20091117
  Transmission Date: 20100710
  Serious: Yes (Life-Threatening, Hospitalization)
  Sender: FDA-Public Use
  Company Number: 6056041

PATIENT
  Age: 32 Year
  Sex: Female

DRUGS (2)
  1. LEVOTHYROXINE SODIUM [Suspect]
     Indication: BASEDOW'S DISEASE
     Dosage: 50 MCG, ORAL, 75 MCG, ORAL #2 END OF SEPT. BEGINNNING OF OCT
     Route: 048
  2. NEOMERCAZOLE (TABLET) (CARBIMAZOLE) [Suspect]
     Dosage: 20 MG. ORAL, 8 MONTHS AGO, 15 MG, ORAL END OF SEPT, BEGINNING OF OCT.

REACTIONS (5)
  - CARDIAC ARREST [None]
  - CHOLESTASIS [None]
  - COMA [None]
  - FATIGUE [None]
  - HYPOTHYROIDISM [None]
